APPROVED DRUG PRODUCT: HYDROXYUREA
Active Ingredient: HYDROXYUREA
Strength: 500MG
Dosage Form/Route: CAPSULE;ORAL
Application: A218021 | Product #001 | TE Code: AB
Applicant: QILU PHARMACEUTICAL CO LTD
Approved: Mar 6, 2024 | RLD: No | RS: No | Type: RX